FAERS Safety Report 19579877 (Version 1)
Quarter: 2021Q3

REPORT INFORMATION
  Report Type: Spontaneous
  Country: FR (occurrence: FR)
  Receive Date: 20210719
  Receipt Date: 20210719
  Transmission Date: 20211014
  Serious: Yes (Other)
  Sender: FDA-Public Use
  Company Number: NVSC2021FR155426

PATIENT
  Age: 76 Year
  Sex: Female

DRUGS (3)
  1. LEXOMIL [Concomitant]
     Active Substance: BROMAZEPAM
     Indication: SLEEP DISORDER
     Dosage: 0.25 DF (IF NEEDED)
     Route: 048
  2. DOLIPRANE [Concomitant]
     Active Substance: ACETAMINOPHEN
     Indication: PAIN
     Dosage: IF NEEDED
     Route: 048
  3. ONBREZ BREEZHALER [Suspect]
     Active Substance: INDACATEROL
     Indication: CHRONIC OBSTRUCTIVE PULMONARY DISEASE
     Dosage: 150 UG, QD
     Route: 055
     Dates: start: 202104, end: 20210702

REACTIONS (9)
  - Atrial fibrillation [Not Recovered/Not Resolved]
  - Pollakiuria [Unknown]
  - Secretion discharge [Unknown]
  - Arrhythmia [Unknown]
  - Muscle spasms [Unknown]
  - Thyroid mass [Unknown]
  - Joint swelling [Recovering/Resolving]
  - Bronchospasm [Unknown]
  - Pruritus [Unknown]
